FAERS Safety Report 5238271-4 (Version None)
Quarter: 2007Q1

REPORT INFORMATION
  Report Type: 
  Country: None (occurrence: None)
  Receive Date: 20061208
  Receipt Date: 20050527
  Transmission Date: 20070707
  Serious: Yes (Other)
  Sender: FDA-Public Use
  Company Number: 2005UW08292

PATIENT
  Age: 58 Year
  Sex: Male
  Weight: 108.86 kg

DRUGS (5)
  1. CRESTOR [Suspect]
     Indication: BLOOD CHOLESTEROL INCREASED
     Dosage: 5 MG PO
     Route: 048
     Dates: start: 20050301, end: 20050101
  2. CRESTOR [Suspect]
     Indication: BLOOD CHOLESTEROL INCREASED
     Dosage: 5 MG PO
     Route: 048
     Dates: start: 20050101, end: 20050501
  3. AVANDIA [Concomitant]
  4. WELLBUTRIN [Concomitant]
  5. BENICAR [Concomitant]

REACTIONS (3)
  - BLOOD URINE PRESENT [None]
  - BURNING SENSATION [None]
  - PAIN [None]
